FAERS Safety Report 8054562 (Version 5)
Quarter: 2012Q4

REPORT INFORMATION
  Report Type: 
  Country: US (occurrence: US)
  Receive Date: 20110713
  Receipt Date: 20121130
  Transmission Date: 20130627
  Serious: Yes (Hospitalization, Disabling, Other)
  Sender: FDA-Public Use
  Company Number: US-009507513-2011SP006459

PATIENT

DRUGS (3)
  1. NUVARING [Suspect]
     Indication: CONTRACEPTION
     Dosage: UNK
     Route: 067
     Dates: start: 20060215, end: 200901
  2. HYDROCHLOROTHIAZIDE [Concomitant]
     Indication: HYPERTENSION
     Dosage: 12.5 mg, qam
     Route: 048
     Dates: start: 200710, end: 20090122
  3. HYDROCHLOROTHIAZIDE [Concomitant]
     Dosage: 25 mg, QD
     Route: 048
     Dates: start: 200901, end: 2009

REACTIONS (17)
  - Hypokalaemia [Unknown]
  - Hypercoagulation [Unknown]
  - Deep vein thrombosis [Recovered/Resolved with Sequelae]
  - Pulmonary embolism [Unknown]
  - Phlebitis [Unknown]
  - Essential hypertension [Unknown]
  - Road traffic accident [Recovered/Resolved]
  - Costochondritis [Unknown]
  - Uterine leiomyoma [Not Recovered/Not Resolved]
  - Head injury [Recovered/Resolved]
  - Venous insufficiency [Not Recovered/Not Resolved]
  - Plantar fasciitis [Unknown]
  - Pain in extremity [Unknown]
  - Dysmenorrhoea [Unknown]
  - Menorrhagia [Unknown]
  - Migraine [Unknown]
  - Uterine leiomyoma [Unknown]
